FAERS Safety Report 7773143-2 (Version None)
Quarter: 2011Q3

REPORT INFORMATION
  Report Type: 
  Country: None (occurrence: None)
  Receive Date: 20110922
  Receipt Date: 20110602
  Transmission Date: 20111222
  Serious: No
  Sender: FDA-Public Use
  Company Number: US-ASTRAZENECA-2011SE34123

PATIENT
  Sex: Female

DRUGS (5)
  1. SEROQUEL [Suspect]
     Route: 048
  2. PAXIL [Concomitant]
  3. SEROQUEL [Suspect]
     Indication: MAJOR DEPRESSION
     Route: 048
  4. KLONOPIN [Concomitant]
  5. INDERAL [Concomitant]
     Indication: HYPERTENSION

REACTIONS (2)
  - CHOKING SENSATION [None]
  - DYSPHAGIA [None]
